FAERS Safety Report 9834687 (Version 2)
Quarter: 2014Q1

REPORT INFORMATION
  Report Type: Report from Study
  Country: BR (occurrence: BR)
  Receive Date: 20140122
  Receipt Date: 20140122
  Transmission Date: 20141002
  Serious: Yes (Death)
  Sender: FDA-Public Use
  Company Number: BR-BRISTOL-MYERS SQUIBB COMPANY-19966597

PATIENT
  Sex: 0

DRUGS (5)
  1. REYATAZ [Suspect]
     Route: 064
  2. RITONAVIR [Suspect]
     Route: 064
  3. TRUVADA [Suspect]
     Dosage: 1DF: 1 UNIT NOS
     Route: 064
  4. COMBIVIR [Suspect]
     Dosage: 1 DOSAGE FORM = 2 TABLETS/CAPSULE
     Route: 064
     Dates: start: 20130703
  5. KALETRA [Suspect]
     Dosage: 1 DF = 4 TABS/CAPS
     Route: 064
     Dates: start: 20130703

REACTIONS (1)
  - Stillbirth [Fatal]
